FAERS Safety Report 4452075-1 (Version None)
Quarter: 2004Q3

REPORT INFORMATION
  Report Type: 
  Country: None (occurrence: None)
  Receive Date: 20040917
  Receipt Date: 20040907
  Transmission Date: 20050211
  Serious: Yes (Life-Threatening, Hospitalization)
  Sender: FDA-Public Use
  Company Number: FR-BRISTOL-MYERS SQUIBB COMPANY-12699856

PATIENT
  Age: 61 Year
  Sex: Male

DRUGS (2)
  1. GLUCOPHAGE [Suspect]
     Indication: DIABETES MELLITUS
     Dosage: DOSE INCREASED IN AUG-2004 FROM 1700MG DAILY TO 3000MG DAILY
     Route: 048
  2. AMAREL [Suspect]
     Indication: DIABETES MELLITUS
     Route: 048

REACTIONS (2)
  - ANAEMIA [None]
  - HYPOGLYCAEMIC COMA [None]
